FAERS Safety Report 7256885-7 (Version None)
Quarter: 2011Q1

REPORT INFORMATION
  Report Type: 
  Country: None (occurrence: None)
  Receive Date: 20110129
  Receipt Date: 20100616
  Transmission Date: 20110831
  Serious: No
  Sender: FDA-Public Use
  Company Number: US-ABBOTT-10P-163-0652597-00

PATIENT
  Sex: Male
  Weight: 65.83 kg

DRUGS (7)
  1. HUMIRA [Suspect]
     Indication: RHEUMATOID ARTHRITIS
     Route: 058
     Dates: start: 20080101
  2. METHOTREXATE [Concomitant]
     Indication: PRODUCT USED FOR UNKNOWN INDICATION
     Route: 048
     Dates: end: 20100101
  3. METHOTREXATE [Concomitant]
     Route: 048
     Dates: start: 20100101, end: 20100401
  4. FOLIC ACID [Concomitant]
     Indication: PRODUCT USED FOR UNKNOWN INDICATION
     Dosage: UNSURE OF STRENGTH
     Route: 048
  5. UNKNOWN CHOLESTEROL MEDICATION [Concomitant]
     Indication: BLOOD CHOLESTEROL
     Route: 048
  6. METHOTREXATE [Concomitant]
     Route: 048
     Dates: start: 20100401
  7. ASPIRIN [Concomitant]
     Indication: PRODUCT USED FOR UNKNOWN INDICATION
     Route: 048

REACTIONS (6)
  - ARTHRALGIA [None]
  - OXYGEN SATURATION DECREASED [None]
  - DYSPNOEA [None]
  - FATIGUE [None]
  - CHEST X-RAY ABNORMAL [None]
  - CARBON DIOXIDE INCREASED [None]
